FAERS Safety Report 4743737-7 (Version None)
Quarter: 2005Q3

REPORT INFORMATION
  Report Type: 
  Country: None (occurrence: None)
  Receive Date: 20050812
  Receipt Date: 20041110
  Transmission Date: 20060218
  Serious: Yes (Other)
  Sender: FDA-Public Use
  Company Number: GB-GLAXOSMITHKLINE-B0356916A

PATIENT
  Age: 37 Year
  Sex: Female
  Weight: 60.5 kg

DRUGS (2)
  1. ZYBAN [Suspect]
     Dosage: 150MG SEE DOSAGE TEXT
     Route: 048
     Dates: start: 20040920, end: 20041108
  2. INFERTILITY THERAPY UNSPECIFIED [Concomitant]

REACTIONS (1)
  - ABORTION SPONTANEOUS [None]
